FAERS Safety Report 6145751-6 (Version None)
Quarter: 2009Q2

REPORT INFORMATION
  Report Type: 
  Country: None (occurrence: None)
  Receive Date: 20090406
  Receipt Date: 20090406
  Transmission Date: 20091009
  Serious: Yes (Other)
  Sender: FDA-Public Use
  Company Number: None

PATIENT
  Sex: Male

DRUGS (3)
  1. FLUOXETINE [Suspect]
     Indication: MAJOR DEPRESSION
     Dosage: V (5 PILLS) Q AM PO 100 MG
     Route: 048
  2. FLUOXETINE [Suspect]
     Indication: OBSESSIVE-COMPULSIVE DISORDER
     Dosage: V (5 PILLS) Q AM PO 100 MG
     Route: 048
  3. FLUOXETINE [Suspect]
     Indication: PANIC DISORDER
     Dosage: V (5 PILLS) Q AM PO 100 MG
     Route: 048

REACTIONS (4)
  - DEPRESSION [None]
  - OBSESSIVE-COMPULSIVE DISORDER [None]
  - PANIC ATTACK [None]
  - THERAPEUTIC RESPONSE UNEXPECTED WITH DRUG SUBSTITUTION [None]
